FAERS Safety Report 4635541-5 (Version None)
Quarter: 2005Q2

REPORT INFORMATION
  Report Type: 
  Country: None (occurrence: None)
  Receive Date: 20050413
  Receipt Date: 20050402
  Transmission Date: 20051028
  Serious: Yes (Death, Life-Threatening, Other)
  Sender: FDA-Public Use
  Company Number: 2005JP000347

PATIENT
  Age: 23 Year
  Sex: Female
  Weight: 47.7 kg

DRUGS (13)
  1. TACROLIMUS CAPSULES(TACROLIMUS CAPSULES) CAPSULE [Suspect]
     Indication: LUNG TRANSPLANT
     Dosage: 2.00 MG, ORAL; SEE IMAGE
     Route: 048
     Dates: start: 20021114, end: 20021117
  2. TACROLIMUS CAPSULES(TACROLIMUS CAPSULES) CAPSULE [Suspect]
     Indication: LUNG TRANSPLANT
     Dosage: 2.00 MG, ORAL; SEE IMAGE
     Route: 048
     Dates: start: 20021118
  3. METHYLPREDNISOLONE [Concomitant]
  4. PREDNISOLONE [Concomitant]
  5. CELLCEPT [Concomitant]
  6. SIMULECT [Concomitant]
  7. FAMOTIDINE [Concomitant]
  8. OMEPRAL (OMPEPRAZOLE) [Concomitant]
  9. PANSPORIN (CEFOTIAM HYDROCHLORIDE) [Concomitant]
  10. TIENAM/SCH/(IMIPENEM, CILASTATIN, CILASTATIN SODIUM) [Concomitant]
  11. HABEKACIN (ARBEKACIN) INJECTION [Concomitant]
  12. CLINDAMYCIN HCL [Concomitant]
  13. DIFLUCAN [Concomitant]

REACTIONS (4)
  - GRAFT DYSFUNCTION [None]
  - HEPATIC FAILURE [None]
  - INJURY [None]
  - RENAL FAILURE [None]
